FAERS Safety Report 4476768-5 (Version None)
Quarter: 2004Q4

REPORT INFORMATION
  Report Type: 
  Country: None (occurrence: None)
  Receive Date: 20041015
  Receipt Date: 20041015
  Transmission Date: 20050328
  Serious: Yes (Other)
  Sender: FDA-Public Use
  Company Number: None

PATIENT
  Age: 44 Year
  Sex: Male
  Weight: 67.586 kg

DRUGS (1)
  1. ULTRAM [Suspect]
     Indication: VARICOSE VEIN
     Dosage: 2 PO QID PM PAIN
     Route: 048

REACTIONS (1)
  - HEADACHE [None]
